FAERS Safety Report 6980190-7 (Version None)
Quarter: 2010Q3

REPORT INFORMATION
  Report Type: 
  Country: None (occurrence: None)
  Receive Date: 20100908
  Receipt Date: 20100823
  Transmission Date: 20110219
  Serious: Yes (Hospitalization)
  Sender: FDA-Public Use
  Company Number: 2010001374

PATIENT
  Age: 71 Year
  Sex: Female
  Weight: 48.2 kg

DRUGS (11)
  1. TARCEVA [Suspect]
     Indication: LUNG ADENOCARCINOMA
     Dosage: 150 MG, QD, ORAL; 50 MG, QD, ORAL; 25 MG, QD, ORAL; 25 MG, QD, ORAL
     Route: 048
     Dates: start: 20080330, end: 20080331
  2. TARCEVA [Suspect]
     Indication: LUNG ADENOCARCINOMA
     Dosage: 150 MG, QD, ORAL; 50 MG, QD, ORAL; 25 MG, QD, ORAL; 25 MG, QD, ORAL
     Route: 048
     Dates: start: 20080410, end: 20100331
  3. TARCEVA [Suspect]
     Indication: LUNG ADENOCARCINOMA
     Dosage: 150 MG, QD, ORAL; 50 MG, QD, ORAL; 25 MG, QD, ORAL; 25 MG, QD, ORAL
     Route: 048
     Dates: start: 20080206
  4. TARCEVA [Suspect]
     Indication: LUNG ADENOCARCINOMA
     Dosage: 150 MG, QD, ORAL; 50 MG, QD, ORAL; 25 MG, QD, ORAL; 25 MG, QD, ORAL
     Route: 048
     Dates: start: 20100511
  5. NERIPROCT SUPPOSITORIES (DIFLUCORTOLONE VALERATE) [Concomitant]
  6. POSTERISAN (POSTERISAN) [Concomitant]
  7. AMOBAN (ZOPICLONE) [Concomitant]
  8. PIRENOXINE (PIRENOXINE) [Concomitant]
  9. RIKKUNSHI-TO [Concomitant]
  10. SAIKO-KEISHI-TO [Concomitant]
  11. LANSOPRAZOLE [Concomitant]

REACTIONS (2)
  - ELECTROCARDIOGRAM ST-T SEGMENT DEPRESSION [None]
  - PRINZMETAL ANGINA [None]
